FAERS Safety Report 19596453 (Version 1)
Quarter: 2021Q3

REPORT INFORMATION
  Report Type: Spontaneous
  Country: NO (occurrence: NO)
  Receive Date: 20210722
  Receipt Date: 20210722
  Transmission Date: 20211014
  Serious: Yes (Hospitalization, Disabling, Other)
  Sender: FDA-Public Use
  Company Number: NO-OTSUKA-2021_025134

PATIENT
  Age: 36 Year
  Sex: Female
  Weight: 76 kg

DRUGS (2)
  1. ABILIFY [Suspect]
     Active Substance: ARIPIPRAZOLE
     Indication: PSYCHOTIC DISORDER
     Dosage: 10 MG
     Route: 048
     Dates: end: 202009
  2. ORFIRIL [Concomitant]
     Active Substance: VALPROATE SODIUM
     Indication: MENTAL DISORDER
     Dosage: 900 MG, BID
     Route: 065
     Dates: start: 2018

REACTIONS (7)
  - Muscle spasms [Unknown]
  - Muscle twitching [Recovering/Resolving]
  - Muscular weakness [Unknown]
  - Panic attack [Recovered/Resolved with Sequelae]
  - Type 2 diabetes mellitus [Unknown]
  - Anxiety [Recovered/Resolved with Sequelae]
  - Product use in unapproved indication [Unknown]

NARRATIVE: CASE EVENT DATE: 2019
